FAERS Safety Report 25314662 (Version 2)
Quarter: 2025Q2

REPORT INFORMATION
  Report Type: Spontaneous
  Country: EG (occurrence: EG)
  Receive Date: 20250514
  Receipt Date: 20250521
  Transmission Date: 20250716
  Serious: Yes (Other)
  Sender: NOVO NORDISK
  Company Number: EG-NOVOPROD-1418339

PATIENT
  Age: 579 Month
  Sex: Female
  Weight: 95 kg

DRUGS (9)
  1. ASPIRIN [Concomitant]
     Active Substance: ASPIRIN
     Indication: Anticoagulant therapy
     Route: 048
  2. NEURONTIN [Concomitant]
     Active Substance: GABAPENTIN
     Indication: Diabetic foot
     Dosage: 300 MG, QD (BEFORE BED)
     Route: 048
  3. INSULIN HUMAN [Suspect]
     Active Substance: INSULIN HUMAN
     Indication: Diabetes mellitus
     Dosage: 60 IU, QD (40 IU MORNING, 20 IU NIGHT)STARTED 5 YEARS AGO
     Route: 058
  4. ALPHINTERN [Concomitant]
     Indication: Inflammation
     Route: 048
  5. ALPHINTERN [Concomitant]
     Indication: Swelling
  6. AMOXICILLIN\CLAVULANIC ACID [Concomitant]
     Active Substance: AMOXICILLIN\CLAVULANIC ACID
     Indication: Diabetic foot
     Route: 048
  7. DICLOFENAC SODIUM [Concomitant]
     Active Substance: DICLOFENAC SODIUM
     Indication: Prophylaxis
     Route: 048
  8. ACTRAPID [Suspect]
     Active Substance: INSULIN HUMAN
     Indication: Diabetes mellitus
     Dosage: 20 IU, QD (LUNCH)STARTED 5 YEARS AGO
     Route: 058
  9. ITOPRIDE [Concomitant]
     Active Substance: ITOPRIDE
     Indication: Abdominal discomfort
     Route: 048

REACTIONS (2)
  - Atrophy [Unknown]
  - Blindness [Unknown]
